FAERS Safety Report 11030517 (Version 1)
Quarter: 2015Q2

REPORT INFORMATION
  Report Type: Spontaneous
  Country: CA (occurrence: CA)
  Receive Date: 20150415
  Receipt Date: 20150415
  Transmission Date: 20150821
  Serious: Yes (Hospitalization)
  Sender: FDA-Public Use
  Company Number: CA-PFIZER INC-2015124005

PATIENT
  Age: 63 Year
  Sex: Male
  Weight: 66 kg

DRUGS (27)
  1. AVAPRO [Concomitant]
     Active Substance: IRBESARTAN
  2. DOMPERIDONE [Concomitant]
     Active Substance: DOMPERIDONE
  3. IRON SULFATE [Concomitant]
     Active Substance: FERROUS SULFATE ANHYDROUS
  4. AMIODARONE HCL [Interacting]
     Active Substance: AMIODARONE HYDROCHLORIDE
     Dosage: 200 MG, 1X/DAY
     Route: 048
  5. ARANESP [Concomitant]
     Active Substance: DARBEPOETIN ALFA
  6. COLCHICINE. [Concomitant]
     Active Substance: COLCHICINE
  7. DILAUDID [Concomitant]
     Active Substance: HYDROMORPHONE HYDROCHLORIDE
  8. GRAVOL [Concomitant]
     Active Substance: DIMENHYDRINATE
  9. PANTOLOC [Concomitant]
     Active Substance: PANTOPRAZOLE SODIUM
  10. COLACE [Concomitant]
     Active Substance: DOCUSATE SODIUM
  11. COUMADIN [Concomitant]
     Active Substance: WARFARIN SODIUM
  12. SENNOSIDES. [Concomitant]
     Active Substance: SENNOSIDES
  13. HEPARIN SULFATE [Concomitant]
     Active Substance: SODIUM HEPARAN SULFATE (PORCINE; 5500 MW)
  14. CLONAZEPAM. [Concomitant]
     Active Substance: CLONAZEPAM
  15. CLONIDINE. [Concomitant]
     Active Substance: CLONIDINE
  16. RENVELA [Concomitant]
     Active Substance: SEVELAMER CARBONATE
  17. ZOFRAN [Concomitant]
     Active Substance: ONDANSETRON HYDROCHLORIDE
  18. AMIODARONE HCL [Interacting]
     Active Substance: AMIODARONE HYDROCHLORIDE
     Dosage: 200 MG, 2X/DAY
     Route: 048
  19. RENAVITE [Interacting]
     Active Substance: VITAMINS
     Route: 065
  20. KAYEXALATE [Concomitant]
     Active Substance: SODIUM POLYSTYRENE SULFONATE
  21. AMIODARONE HCL [Suspect]
     Active Substance: AMIODARONE HYDROCHLORIDE
     Indication: ATRIAL FIBRILLATION
     Dosage: 200 MG, 3X/DAY
     Route: 048
  22. GLYCERIN. [Concomitant]
     Active Substance: GLYCERIN
  23. NITROGLYCERIN. [Concomitant]
     Active Substance: NITROGLYCERIN
  24. QUININE [Concomitant]
     Active Substance: QUININE
  25. ADALAT CC [Concomitant]
     Active Substance: NIFEDIPINE
  26. ONE ALPHA [Concomitant]
     Active Substance: ALFACALCIDOL
  27. RAMIPRIL. [Concomitant]
     Active Substance: RAMIPRIL

REACTIONS (2)
  - Secondary hyperthyroidism [Recovered/Resolved]
  - Drug interaction [Recovered/Resolved]
